FAERS Safety Report 18134427 (Version 1)
Quarter: 2020Q3

REPORT INFORMATION
  Report Type: Spontaneous
  Country: US (occurrence: US)
  Receive Date: 20200810
  Receipt Date: 20200810
  Transmission Date: 20201103
  Serious: Yes (Death)
  Sender: FDA-Public Use
  Company Number: None

PATIENT
  Age: 64 Year
  Sex: Male

DRUGS (1)
  1. CYTARABINE SDV 100MG/5ML [Suspect]
     Active Substance: CYTARABINE
     Route: 058
     Dates: start: 20200715

REACTIONS (1)
  - Death [None]

NARRATIVE: CASE EVENT DATE: 20200802
